FAERS Safety Report 8164990-6 (Version None)
Quarter: 2012Q1

REPORT INFORMATION
  Report Type: 
  Country: None (occurrence: None)
  Receive Date: 20120227
  Receipt Date: 20120213
  Transmission Date: 20120608
  Serious: Yes (Other)
  Sender: FDA-Public Use
  Company Number: HR-RANBAXY-2012RR-52426

PATIENT
  Age: 42 Year
  Sex: Male

DRUGS (10)
  1. HALOPERIDOL [Suspect]
     Indication: SCHIZOAFFECTIVE DISORDER
     Dosage: 10 MG/DAY
     Route: 065
  2. LORAZEPAM [Suspect]
     Dosage: UNK
     Route: 065
  3. RISPERIDONE [Suspect]
     Dosage: 2 MG/DAY
     Route: 065
  4. DIAZEPAM [Suspect]
     Indication: SCHIZOAFFECTIVE DISORDER
     Dosage: UP TO 60 MG/DAY
     Route: 048
  5. LORAZEPAM [Suspect]
     Indication: SCHIZOAFFECTIVE DISORDER
     Dosage: 900 MG/DAY
     Route: 065
  6. CLOZAPINE [Suspect]
     Indication: SCHIZOAFFECTIVE DISORDER
     Dosage: 25 MG/DAY
     Route: 065
  7. QUETIAPINE [Concomitant]
     Dosage: 800 MG, UNK
     Route: 065
  8. LITHIUM CARBONATE [Concomitant]
     Indication: SCHIZOAFFECTIVE DISORDER
     Dosage: 900 MG/DAY
     Route: 065
  9. RISPERIDONE [Suspect]
     Indication: SCHIZOAFFECTIVE DISORDER
     Dosage: 1 MG/DAY
     Route: 065
  10. QUETIAPINE [Concomitant]
     Indication: SCHIZOAFFECTIVE DISORDER
     Dosage: 25 MG, UNK
     Route: 065

REACTIONS (1)
  - NEUROLEPTIC MALIGNANT SYNDROME [None]
